FAERS Safety Report 6871618-1 (Version None)
Quarter: 2010Q3

REPORT INFORMATION
  Report Type: 
  Country: None (occurrence: None)
  Receive Date: 20100723
  Receipt Date: 20100713
  Transmission Date: 20110219
  Serious: Yes (Other)
  Sender: FDA-Public Use
  Company Number: US-PFIZER INC-2009302503

PATIENT
  Sex: Female
  Weight: 68.027 kg

DRUGS (5)
  1. NEURONTIN [Suspect]
     Indication: ANXIETY
     Dosage: UNK
     Route: 048
     Dates: start: 20080101, end: 20090101
  2. NEURONTIN [Suspect]
     Indication: MOOD SWINGS
  3. LYRICA [Suspect]
     Indication: NEURALGIA
     Dosage: 150 MG, 1X/DAY
     Route: 048
     Dates: start: 20090101
  4. ATIVAN [Concomitant]
     Dosage: UNK
  5. CYMBALTA [Concomitant]
     Dosage: UNK

REACTIONS (12)
  - ANXIETY [None]
  - BACK PAIN [None]
  - BUNION [None]
  - BURSITIS [None]
  - CRYING [None]
  - DRUG INEFFECTIVE [None]
  - FEELING ABNORMAL [None]
  - HYPOAESTHESIA [None]
  - MOOD ALTERED [None]
  - NEUROMA [None]
  - OEDEMA PERIPHERAL [None]
  - OVERDOSE [None]
